FAERS Safety Report 24723277 (Version 4)
Quarter: 2025Q1

REPORT INFORMATION
  Report Type: Spontaneous
  Country: US (occurrence: US)
  Receive Date: 20241211
  Receipt Date: 20250131
  Transmission Date: 20250409
  Serious: Yes (Other)
  Sender: PFIZER
  Company Number: US-PFIZER INC-PV202400148628

PATIENT
  Age: 78 Year
  Sex: Female
  Weight: 76.2 kg

DRUGS (9)
  1. TIKOSYN [Suspect]
     Active Substance: DOFETILIDE
     Indication: Atrial fibrillation
     Dosage: 250 UG, 2X/DAY
  2. TIKOSYN [Suspect]
     Active Substance: DOFETILIDE
     Dosage: 250 UG, 1X/DAY
  3. TIKOSYN [Suspect]
     Active Substance: DOFETILIDE
  4. TIKOSYN [Suspect]
     Active Substance: DOFETILIDE
     Dosage: 125 UG (2 TABLETS 2X/DAY)
  5. LIPITOR [Concomitant]
     Active Substance: ATORVASTATIN CALCIUM
     Indication: Cardiac disorder
     Dosage: 20 MG, 1X/DAY
     Route: 048
  6. SPIRONOLACTONE [Concomitant]
     Active Substance: SPIRONOLACTONE
     Indication: Cardiac disorder
     Dosage: HALF A TABLET DAILY
  7. ENTRESTO [Concomitant]
     Active Substance: SACUBITRIL\VALSARTAN
     Indication: Cardiac disorder
     Dosage: (24/26) ONE TABLET BY MOUTH TWICE A DAY
     Route: 048
  8. ELIQUIS [Concomitant]
     Active Substance: APIXABAN
     Indication: Atrial fibrillation
     Dosage: 5 MG, 2X/DAY
  9. LASIX [Concomitant]
     Active Substance: FUROSEMIDE
     Dosage: 0.5 DF, 1X/DAY

REACTIONS (2)
  - Hand fracture [Unknown]
  - Intentional product use issue [Unknown]
